FAERS Safety Report 10264704 (Version 1)
Quarter: 2014Q2

REPORT INFORMATION
  Report Type: Spontaneous
  Country: US (occurrence: US)
  Receive Date: 20140627
  Receipt Date: 20140627
  Transmission Date: 20141212
  Serious: No
  Sender: FDA-Public Use
  Company Number: US-GLAXOSMITHKLINE-A1072833A

PATIENT
  Age: 58 Year
  Sex: Male

DRUGS (7)
  1. TAFINLAR [Suspect]
     Indication: METASTATIC MALIGNANT MELANOMA
     Dosage: 150MG TWICE PER DAY
     Route: 048
     Dates: start: 20140207
  2. AMLODIPINE [Concomitant]
  3. KEFLEX [Concomitant]
  4. CLONIDINE [Concomitant]
  5. LISINOPRIL [Concomitant]
  6. NAPROXEN [Concomitant]
  7. PREDNISONE [Concomitant]

REACTIONS (4)
  - Rash [Not Recovered/Not Resolved]
  - Back pain [Unknown]
  - Myalgia [Unknown]
  - Arthralgia [Unknown]
